FAERS Safety Report 20089644 (Version 1)
Quarter: 2021Q4

REPORT INFORMATION
  Report Type: Spontaneous
  Country: HR (occurrence: HR)
  Receive Date: 20211119
  Receipt Date: 20211119
  Transmission Date: 20220303
  Serious: Yes (Other)
  Sender: FDA-Public Use
  Company Number: HR-STRIDES ARCOLAB LIMITED-2021SP029922

PATIENT
  Age: 8 Year
  Sex: Female

DRUGS (12)
  1. PREDNISOLONE [Suspect]
     Active Substance: PREDNISOLONE
     Indication: T-cell type acute leukaemia
     Dosage: UNK
     Route: 065
  2. PREDNISOLONE [Suspect]
     Active Substance: PREDNISOLONE
     Dosage: UNK
     Route: 048
  3. ASPARAGINASE [Suspect]
     Active Substance: ASPARAGINASE
     Indication: T-cell type acute leukaemia
     Dosage: UNK
     Route: 042
  4. CYCLOPHOSPHAMIDE [Suspect]
     Active Substance: CYCLOPHOSPHAMIDE
     Indication: T-cell type acute leukaemia
     Dosage: UNK
     Route: 042
  5. DAUNORUBICIN [Suspect]
     Active Substance: DAUNORUBICIN
     Indication: T-cell type acute leukaemia
     Dosage: UNK
     Route: 042
  6. LEUCOVORIN [Suspect]
     Active Substance: LEUCOVORIN
     Indication: T-cell type acute leukaemia
     Dosage: UNK
     Route: 042
  7. METHOTREXATE [Suspect]
     Active Substance: METHOTREXATE
     Indication: T-cell type acute leukaemia
     Dosage: UNK
     Route: 042
  8. METHOTREXATE [Suspect]
     Active Substance: METHOTREXATE
     Dosage: UNK
     Route: 037
  9. CYTARABINE [Suspect]
     Active Substance: CYTARABINE
     Indication: T-cell type acute leukaemia
     Dosage: UNK
     Route: 042
  10. MERCAPTOPURINE [Suspect]
     Active Substance: MERCAPTOPURINE
     Indication: T-cell type acute leukaemia
     Dosage: UNK
     Route: 048
  11. MESNA [Suspect]
     Active Substance: MESNA
     Indication: T-cell type acute leukaemia
     Dosage: UNK
     Route: 042
  12. VINCRISTINE [Suspect]
     Active Substance: VINCRISTINE
     Indication: T-cell type acute leukaemia
     Dosage: UNK
     Route: 042

REACTIONS (4)
  - Febrile neutropenia [Unknown]
  - Cerebral ischaemia [Unknown]
  - Pneumonia fungal [Unknown]
  - Osteomyelitis [Unknown]
